FAERS Safety Report 8162997-6 (Version None)
Quarter: 2012Q1

REPORT INFORMATION
  Report Type: 
  Country: None (occurrence: None)
  Receive Date: 20120224
  Receipt Date: 20120220
  Transmission Date: 20120608
  Serious: Yes (Life-Threatening, Other)
  Sender: FDA-Public Use
  Company Number: JP-PFIZER INC-2012029476

PATIENT
  Age: 58 Year
  Sex: Male

DRUGS (7)
  1. MICAFUNGIN SODIUM [Concomitant]
     Dosage: 150 MG/DAY
     Route: 041
     Dates: end: 20111226
  2. VFEND [Suspect]
     Indication: BRONCHOPULMONARY ASPERGILLOSIS
     Dosage: 600 MG/DAY
     Route: 048
     Dates: start: 20111222, end: 20111222
  3. BIO THREE [Concomitant]
     Dosage: 3 G/DAY
     Route: 048
  4. ALLOPURINOL [Concomitant]
     Dosage: 300 MG/DAY
     Route: 048
  5. VFEND [Suspect]
     Dosage: 400 MG/DAY
     Route: 048
     Dates: start: 20111223, end: 20111227
  6. VANCOMYCIN [Concomitant]
     Dosage: 1.5 G/DAY
     Route: 041
     Dates: end: 20120104
  7. RABEPRAZOLE SODIUM [Concomitant]
     Dosage: 10 MG/DAY
     Route: 048

REACTIONS (1)
  - RHABDOMYOLYSIS [None]
